FAERS Safety Report 7953585-2 (Version None)
Quarter: 2011Q4

REPORT INFORMATION
  Report Type: 
  Country: None (occurrence: None)
  Receive Date: 20111202
  Receipt Date: 20111123
  Transmission Date: 20120403
  Serious: Yes (Hospitalization)
  Sender: FDA-Public Use
  Company Number: PHHY2011NO102673

PATIENT
  Sex: Female

DRUGS (3)
  1. AMOXICILLIN [Suspect]
     Indication: HELICOBACTER GASTRITIS
     Dosage: 500 MG, TID
     Route: 048
     Dates: start: 20111104, end: 20111109
  2. METRONIDAZOLE [Suspect]
     Indication: HELICOBACTER GASTRITIS
     Dosage: 500 MG, TID
     Route: 048
     Dates: start: 20111104, end: 20111109
  3. PANTOPRAZOLE [Suspect]
     Indication: HELICOBACTER GASTRITIS
     Dosage: 40 MG, BID
     Route: 048
     Dates: start: 20111104, end: 20111109

REACTIONS (7)
  - BACK PAIN [None]
  - DIZZINESS [None]
  - ABDOMINAL PAIN [None]
  - PRESYNCOPE [None]
  - HEADACHE [None]
  - NAUSEA [None]
  - PLATELET COUNT DECREASED [None]
